FAERS Safety Report 8718183 (Version 2)
Quarter: 2013Q4

REPORT INFORMATION
  Report Type: Spontaneous
  Country: FR (occurrence: FR)
  Receive Date: 20120810
  Receipt Date: 20131031
  Transmission Date: 20140711
  Serious: Yes (Other)
  Sender: FDA-Public Use
  Company Number: FR-009507513-1112FRA00051

PATIENT
  Age: 31 Year
  Sex: Female

DRUGS (1)
  1. PROPECIA [Suspect]
     Dates: end: 201111

REACTIONS (3)
  - Exposure via body fluid [Unknown]
  - Exposure during pregnancy [Unknown]
  - Abortion induced [Unknown]
